FAERS Safety Report 9547472 (Version 1)
Quarter: 2013Q3

REPORT INFORMATION
  Report Type: Spontaneous
  Country: US (occurrence: None)
  Receive Date: 20130919
  Receipt Date: 20130919
  Transmission Date: 20140515
  Serious: Yes (Hospitalization)
  Sender: FDA-Public Use
  Company Number: UTC-037701

PATIENT
  Age: 68 Year
  Sex: Male

DRUGS (1)
  1. REMODULIN (2.5 MILLIGRAM/MILLILITERS, INJECTION FOR INFUSION) (TREPROSTINIL SODIUM) [Suspect]
     Indication: PULMONARY ARTERIAL HYPERTENSION
     Dosage: 2.88 UG/KG )0.002 UG/KG (0.002 UG/KG, 1 IN 1 MIN), SUCUTANEOUS
     Route: 058
     Dates: start: 20130829

REACTIONS (1)
  - Loss of consciousness [None]
